FAERS Safety Report 11604903 (Version 1)
Quarter: 2015Q4

REPORT INFORMATION
  Report Type: Spontaneous
  Country: US (occurrence: US)
  Receive Date: 20151007
  Receipt Date: 20151007
  Transmission Date: 20160304
  Serious: No
  Sender: FDA-Public Use
  Company Number: US-BAYER-2015-438693

PATIENT
  Age: 90 Year
  Sex: Female
  Weight: 71.66 kg

DRUGS (5)
  1. METAMUCIL [Concomitant]
     Active Substance: PLANTAGO SEED
  2. DILTIAZEM [Concomitant]
     Active Substance: DILTIAZEM
  3. XARELTO [Concomitant]
     Active Substance: RIVAROXABAN
  4. MIRALAX [Suspect]
     Active Substance: POLYETHYLENE GLYCOL 3350
     Indication: CONSTIPATION
     Dosage: 1 DF, QD
     Route: 048
     Dates: start: 201509
  5. FEBUXOSTAT. [Concomitant]
     Active Substance: FEBUXOSTAT

REACTIONS (1)
  - Product use issue [None]

NARRATIVE: CASE EVENT DATE: 201509
